FAERS Safety Report 5903215-6 (Version None)
Quarter: 2008Q3

REPORT INFORMATION
  Report Type: 
  Country: None (occurrence: None)
  Receive Date: 20080926
  Receipt Date: 20080917
  Transmission Date: 20090109
  Serious: Yes (Life-Threatening, Hospitalization, Disabling)
  Sender: FDA-Public Use
  Company Number: GXKR2008GB08900

PATIENT
  Age: 88 Year
  Sex: Female

DRUGS (5)
  1. ACETYLSALICYLIC ACID SRT [Suspect]
     Indication: CEREBROVASCULAR ACCIDENT
     Dosage: 75 MG, QD, ORAL
     Route: 048
  2. ACETYLSALICYLIC ACID SRT [Suspect]
     Indication: THROMBOCYTHAEMIA
     Dosage: 75 MG, QD, ORAL
     Route: 048
  3. BENDROFLUMETHIAZIDE (NGX)(BENDROFLUMETHIAZIDE) UNKNOWN [Suspect]
     Indication: THROMBOCYTHAEMIA
     Dosage: 2.5 MG, BID, ORAL
     Route: 048
  4. DIPYRIDAMOLE [Suspect]
     Indication: CEREBROVASCULAR ACCIDENT
     Dosage: 100 MG, TID, ORAL
     Route: 048
  5. AMLODIPINE [Concomitant]

REACTIONS (2)
  - FALL [None]
  - SUBDURAL HAEMATOMA [None]
